FAERS Safety Report 21599003 (Version 6)
Quarter: 2024Q2

REPORT INFORMATION
  Report Type: Spontaneous
  Country: DE (occurrence: DE)
  Receive Date: 20221115
  Receipt Date: 20240520
  Transmission Date: 20240716
  Serious: Yes (Life-Threatening, Hospitalization, Other)
  Sender: FDA-Public Use
  Company Number: DE-SAMSUNG BIOEPIS-SB-2021-27426

PATIENT
  Age: 62 Year
  Sex: Female
  Weight: 88 kg

DRUGS (12)
  1. PACLITAXEL [Suspect]
     Active Substance: PACLITAXEL
     Indication: Breast cancer female
     Route: 042
     Dates: start: 20211221, end: 20220315
  2. PACLITAXEL [Suspect]
     Active Substance: PACLITAXEL
     Indication: Breast cancer
     Route: 042
     Dates: start: 20211117, end: 20211118
  3. PACLITAXEL [Suspect]
     Active Substance: PACLITAXEL
     Indication: Breast cancer female
     Route: 042
     Dates: start: 20211117, end: 20211118
  4. CARBOPLATIN [Suspect]
     Active Substance: CARBOPLATIN
     Indication: Breast cancer female
     Dosage: DOSE: 1?5 AUC, EVERY 21 DAYS
     Route: 042
     Dates: start: 20211117, end: 20220313
  5. PERTUZUMAB [Suspect]
     Active Substance: PERTUZUMAB
     Indication: Breast cancer female
     Dosage: EVERY 21 DAYS
     Route: 042
     Dates: end: 20220315
  6. PERTUZUMAB [Suspect]
     Active Substance: PERTUZUMAB
     Dosage: EVERY 21 DAYS
     Route: 042
     Dates: start: 20211117, end: 20211118
  7. PERTUZUMAB [Suspect]
     Active Substance: PERTUZUMAB
     Dosage: EVERY 21 DAYS
     Route: 042
     Dates: start: 20211117, end: 20220313
  8. ONTRUZANT [Suspect]
     Active Substance: TRASTUZUMAB-DTTB
     Indication: Breast cancer female
     Dosage: EVERY 21 DAYS
     Route: 042
     Dates: start: 20211117, end: 20211118
  9. ONTRUZANT [Suspect]
     Active Substance: TRASTUZUMAB-DTTB
     Dosage: EVERY 21 DAYS
     Route: 042
     Dates: end: 20220315
  10. ONTRUZANT [Suspect]
     Active Substance: TRASTUZUMAB-DTTB
     Dosage: EVERY 21 DAYS
     Route: 042
     Dates: end: 20220313
  11. ALBUTEROL [Concomitant]
     Active Substance: ALBUTEROL
     Indication: Asthma
     Dosage: UNKNOWN
     Route: 055
  12. LEVOTHYROXINE SODIUM [Concomitant]
     Active Substance: LEVOTHYROXINE SODIUM
     Indication: Hypothyroidism
     Route: 048

REACTIONS (18)
  - Pyrexia [Recovered/Resolved]
  - General physical health deterioration [Not Recovered/Not Resolved]
  - Infection [Unknown]
  - Vomiting [Recovered/Resolved]
  - Diarrhoea [Recovered/Resolved]
  - Malaise [Recovered/Resolved]
  - Pneumonia respiratory syncytial viral [Recovered/Resolved]
  - Acute kidney injury [Recovered/Resolved]
  - Thrombocytopenia [Unknown]
  - Hypokalaemia [Not Recovered/Not Resolved]
  - Cough [Unknown]
  - Anaemia [Unknown]
  - Urinary tract infection enterococcal [Unknown]
  - Escherichia urinary tract infection [Unknown]
  - Dehydration [Unknown]
  - C-reactive protein increased [Recovering/Resolving]
  - Off label use [Unknown]
  - Device related infection [Recovered/Resolved]

NARRATIVE: CASE EVENT DATE: 20211118
